FAERS Safety Report 17610187 (Version 4)
Quarter: 2020Q2

REPORT INFORMATION
  Report Type: Report from Study
  Country: US (occurrence: US)
  Receive Date: 20200401
  Receipt Date: 20200630
  Transmission Date: 20200713
  Serious: Yes (Hospitalization, Other)
  Sender: FDA-Public Use
  Company Number: US-GLAXOSMITHKLINE-US2019TSO205194

PATIENT
  Sex: Female

DRUGS (4)
  1. NIRAPARIB [Suspect]
     Active Substance: NIRAPARIB
     Dosage: 200 MG, QD
  2. NIRAPARIB [Suspect]
     Active Substance: NIRAPARIB
     Dosage: 200 MG
  3. NIRAPARIB [Suspect]
     Active Substance: NIRAPARIB
     Dosage: 100 MG
  4. NIRAPARIB [Suspect]
     Active Substance: NIRAPARIB
     Indication: OVARIAN CANCER
     Dosage: 200 MG, 9AM WITH FOOD
     Dates: start: 20191106

REACTIONS (15)
  - Arteriosclerosis [Unknown]
  - Blood creatinine increased [Unknown]
  - Nausea [Recovered/Resolved]
  - Hypertension [Recovering/Resolving]
  - Dyspepsia [Recovered/Resolved]
  - Neuropathy peripheral [Unknown]
  - Constipation [Recovered/Resolved]
  - Pain in extremity [Unknown]
  - Decreased appetite [Recovered/Resolved]
  - Erythema [Unknown]
  - Burning sensation [Unknown]
  - Blood pressure increased [Unknown]
  - Off label use [Unknown]
  - Weight decreased [Unknown]
  - Fatigue [Recovering/Resolving]
